FAERS Safety Report 17175263 (Version 1)
Quarter: 2019Q4

REPORT INFORMATION
  Report Type: Spontaneous
  Country: US (occurrence: US)
  Receive Date: 20191219
  Receipt Date: 20191219
  Transmission Date: 20200122
  Serious: No
  Sender: FDA-Public Use
  Company Number: US-UCBSA-116483

PATIENT
  Age: 66 Year
  Sex: Male
  Weight: 104.3 kg

DRUGS (1)
  1. CIMZIA [Suspect]
     Active Substance: CERTOLIZUMAB PEGOL
     Indication: POLYARTHRITIS
     Dosage: DISCONTINUED DUE TO INSURANCE ISSUES
     Route: 058
     Dates: start: 200908, end: 20140404

REACTIONS (4)
  - Swelling [Not Recovered/Not Resolved]
  - Loss of personal independence in daily activities [Not Recovered/Not Resolved]
  - Pain [Not Recovered/Not Resolved]
  - Gait disturbance [Not Recovered/Not Resolved]

NARRATIVE: CASE EVENT DATE: 201402
